FAERS Safety Report 23408944 (Version 1)
Quarter: 2024Q1

REPORT INFORMATION
  Report Type: Spontaneous
  Country: US (occurrence: US)
  Receive Date: 20240117
  Receipt Date: 20240117
  Transmission Date: 20240409
  Serious: Yes (Other)
  Sender: FDA-Public Use
  Company Number: US-EPICPHARMA-US-2024EPCLIT00039

PATIENT
  Age: 72 Year
  Sex: Female

DRUGS (2)
  1. MOXIFLOXACIN HYDROCHLORIDE [Suspect]
     Active Substance: MOXIFLOXACIN HYDROCHLORIDE\MOXIFLOXACIN HYDROCHLORIDE MONOHYDRATE
     Indication: Glaucoma surgery
  2. MITOMYCIN C [Suspect]
     Active Substance: MITOMYCIN
     Indication: Glaucoma surgery
     Dosage: 0.2 MG/ML INJECTION AT 0.2ML
     Route: 057

REACTIONS (3)
  - Iris atrophy [Unknown]
  - Iris transillumination defect [Unknown]
  - Product use in unapproved indication [Unknown]
